FAERS Safety Report 4476953-2 (Version None)
Quarter: 2004Q4

REPORT INFORMATION
  Report Type: 
  Country: None (occurrence: None)
  Receive Date: 20041013
  Receipt Date: 20040928
  Transmission Date: 20050328
  Serious: Yes (Hospitalization)
  Sender: FDA-Public Use
  Company Number: 8966

PATIENT
  Age: 59 Year
  Sex: Male

DRUGS (4)
  1. LEDERFOLINE [Suspect]
     Dosage: 380 MG DAILY IV
     Route: 042
     Dates: start: 20030708, end: 20031215
  2. OXALIPLATIN [Suspect]
     Dosage: 160 MG DAILY IV
     Route: 042
     Dates: start: 20030708, end: 20031215
  3. FLUOROURACIL [Suspect]
     Dosage: 0.75 G DAILY IV
     Route: 042
     Dates: start: 20030708, end: 20031215
  4. ONDANSETRON [Concomitant]

REACTIONS (2)
  - CHILLS [None]
  - PYREXIA [None]
